FAERS Safety Report 16993939 (Version 1)
Quarter: 2019Q4

REPORT INFORMATION
  Report Type: Spontaneous
  Country: GB (occurrence: GB)
  Receive Date: 20191105
  Receipt Date: 20191105
  Transmission Date: 20200122
  Serious: Yes (Life-Threatening, Hospitalization, Other)
  Sender: FDA-Public Use
  Company Number: GB-ASTRAZENECA-2019SF56824

PATIENT
  Age: 38 Year
  Sex: Female
  Weight: 94 kg

DRUGS (1)
  1. DAPAGLIFLOZIN. [Suspect]
     Active Substance: DAPAGLIFLOZIN
     Indication: HYPERGLYCAEMIA
     Route: 048
     Dates: start: 20190625

REACTIONS (1)
  - Diabetic ketoacidosis [Not Recovered/Not Resolved]

NARRATIVE: CASE EVENT DATE: 20191010
